FAERS Safety Report 7482890-1 (Version None)
Quarter: 2011Q2

REPORT INFORMATION
  Report Type: 
  Country: None (occurrence: None)
  Receive Date: 20110516
  Receipt Date: 20110506
  Transmission Date: 20111010
  Serious: Yes (Hospitalization, Disabling, Other)
  Sender: FDA-Public Use
  Company Number: AT-ABBOTT-09P-009-0584203-00

PATIENT
  Sex: Female
  Weight: 61 kg

DRUGS (7)
  1. QUANTALAN [Concomitant]
     Indication: DIARRHOEA
     Dates: start: 20090709
  2. ENTOCORT EC [Concomitant]
     Indication: SIGMOIDITIS
     Dates: start: 20090709, end: 20090901
  3. PANTOLOC [Concomitant]
     Indication: STEROID THERAPY
     Dates: start: 20100210
  4. FERROUS SULFATE TAB [Concomitant]
     Indication: SERUM FERRITIN DECREASED
     Dates: start: 20071201
  5. HUMIRA [Suspect]
     Indication: CROHN'S DISEASE
     Route: 058
     Dates: start: 20080321, end: 20091204
  6. APREDNISLON [Concomitant]
     Indication: CROHN'S DISEASE
     Dates: start: 20091010
  7. CALCIUM D3 [Concomitant]
     Indication: OSTEOPENIA
     Dates: start: 20061201

REACTIONS (2)
  - THYROID CANCER [None]
  - THYROID NEOPLASM [None]
